FAERS Safety Report 8471303-9 (Version None)
Quarter: 2012Q2

REPORT INFORMATION
  Report Type: 
  Country: None (occurrence: None)
  Receive Date: 20120621
  Receipt Date: 20120612
  Transmission Date: 20120825
  Serious: Yes (Life-Threatening, Hospitalization)
  Sender: FDA-Public Use
  Company Number: 2012-2726

PATIENT
  Age: 16 Year
  Sex: Male
  Weight: 48.53 kg

DRUGS (5)
  1. INCRELEX [Suspect]
     Indication: BODY HEIGHT BELOW NORMAL
     Dosage: 4.8 MG (2.4 MG (2.4 MG, 2 IN 1 D), SUBCUTANEOUS, 4.8 MG (2.4 MG, 2 IN 1 D), SUBCUTANEOUS
     Route: 058
     Dates: start: 20120608, end: 20120612
  2. INCRELEX [Suspect]
     Indication: OFF LABEL USE
     Dosage: 4.8 MG (2.4 MG (2.4 MG, 2 IN 1 D), SUBCUTANEOUS, 4.8 MG (2.4 MG, 2 IN 1 D), SUBCUTANEOUS
     Route: 058
     Dates: start: 20120608, end: 20120612
  3. INCRELEX [Suspect]
     Indication: BODY HEIGHT BELOW NORMAL
     Dosage: 4.8 MG (2.4 MG (2.4 MG, 2 IN 1 D), SUBCUTANEOUS, 4.8 MG (2.4 MG, 2 IN 1 D), SUBCUTANEOUS
     Route: 058
     Dates: start: 20100401, end: 20111201
  4. INCRELEX [Suspect]
     Indication: OFF LABEL USE
     Dosage: 4.8 MG (2.4 MG (2.4 MG, 2 IN 1 D), SUBCUTANEOUS, 4.8 MG (2.4 MG, 2 IN 1 D), SUBCUTANEOUS
     Route: 058
     Dates: start: 20100401, end: 20111201
  5. NUTROPIN [Concomitant]

REACTIONS (5)
  - MUSCLE ATROPHY [None]
  - DEPRESSION [None]
  - MALNUTRITION [None]
  - EXPIRED DRUG ADMINISTERED [None]
  - CARDIAC DISORDER [None]
